FAERS Safety Report 7975922-5 (Version None)
Quarter: 2011Q4

REPORT INFORMATION
  Report Type: 
  Country: None (occurrence: None)
  Receive Date: 20111213
  Receipt Date: 20111007
  Transmission Date: 20120403
  Serious: No
  Sender: FDA-Public Use
  Company Number: US-AMGEN-USASP2011051987

PATIENT
  Sex: Female

DRUGS (6)
  1. CELEBREX [Concomitant]
  2. FOLIC ACID [Concomitant]
  3. ENBREL [Suspect]
     Indication: PRODUCT USED FOR UNKNOWN INDICATION
     Dosage: 50 MG, UNK
     Dates: start: 20110901
  4. LANOXIN [Concomitant]
  5. METHOTREXATE [Concomitant]
  6. SYNTHROID [Concomitant]

REACTIONS (1)
  - SINUSITIS [None]
